FAERS Safety Report 5823367-6 (Version None)
Quarter: 2008Q3

REPORT INFORMATION
  Report Type: 
  Country: None (occurrence: None)
  Receive Date: 20080725
  Receipt Date: 20080715
  Transmission Date: 20090109
  Serious: Yes (Hospitalization)
  Sender: FDA-Public Use
  Company Number: FR-ROCHE-575814

PATIENT
  Age: 88 Year
  Sex: Male

DRUGS (12)
  1. CLONAZEPAM [Suspect]
     Indication: DRUG USE FOR UNKNOWN INDICATION
     Route: 048
     Dates: start: 20070820, end: 20080128
  2. POLERY ADULTE [Suspect]
     Indication: DRUG USE FOR UNKNOWN INDICATION
     Route: 065
     Dates: start: 20080125, end: 20080128
  3. IMOVANE [Suspect]
     Indication: DRUG USE FOR UNKNOWN INDICATION
     Dosage: DRUG NAME: IMOVANE 7.5
     Route: 065
     Dates: end: 20080128
  4. RISPERDAL [Suspect]
     Indication: DRUG USE FOR UNKNOWN INDICATION
     Route: 065
     Dates: start: 20070913, end: 20080128
  5. TIAPRIDAL [Suspect]
     Indication: DRUG USE FOR UNKNOWN INDICATION
     Route: 065
     Dates: start: 20080116, end: 20080128
  6. TIAPRIDAL [Suspect]
     Dosage: DOSAGE: 15 DROPS/DAY
     Route: 065
  7. MEMANTINE HCL [Concomitant]
     Dates: start: 20080718
  8. AMLOR [Concomitant]
     Dates: start: 20080718
  9. PERINDOPRIL ERBUMINE [Concomitant]
     Dates: start: 20080718
  10. CLAMOXYL [Concomitant]
     Dates: start: 20080126, end: 20080128
  11. SOLUPRED [Concomitant]
     Dates: start: 20080126, end: 20080128
  12. KARDEGIC [Concomitant]

REACTIONS (2)
  - LUNG DISORDER [None]
  - SOMNOLENCE [None]
